FAERS Safety Report 19205950 (Version 2)
Quarter: 2021Q2

REPORT INFORMATION
  Report Type: Spontaneous
  Country: NZ (occurrence: NZ)
  Receive Date: 20210503
  Receipt Date: 20210518
  Transmission Date: 20210717
  Serious: Yes (Hospitalization, Other)
  Sender: FDA-Public Use
  Company Number: NZ-SA-2021SA136186

PATIENT
  Age: 62 Year
  Sex: Female

DRUGS (5)
  1. RIFAMPICIN [Suspect]
     Active Substance: RIFAMPIN
     Dosage: 3 DF (3 TABLETS)
     Dates: start: 1973, end: 1973
  2. RIFAMPICIN [Suspect]
     Active Substance: RIFAMPIN
     Dosage: 3 DF (3 TABLETS)
     Dates: start: 1973, end: 1973
  3. SODIUM AMINOSALICYLATE [Concomitant]
     Active Substance: AMINOSALICYLATE SODIUM
     Indication: PULMONARY TUBERCULOSIS
     Dosage: THREE CACHETS TWICE DAILY
     Dates: start: 197204, end: 197308
  4. RIFAMPICIN [Suspect]
     Active Substance: RIFAMPIN
     Indication: PULMONARY TUBERCULOSIS
     Dosage: 3 DF (3 TABLETS)
     Dates: start: 1973, end: 1973
  5. RIFAMPICIN [Suspect]
     Active Substance: RIFAMPIN
     Dosage: 450 MG, QD
     Dates: start: 197204, end: 197308

REACTIONS (15)
  - Hepatorenal failure [Recovered/Resolved]
  - Lethargy [Recovered/Resolved]
  - Anuria [Recovered/Resolved]
  - Abdominal pain [Recovered/Resolved]
  - Nausea [Recovered/Resolved]
  - Jaundice [Recovered/Resolved]
  - Back pain [Recovered/Resolved]
  - Hepatocellular injury [Recovered/Resolved]
  - Acute kidney injury [Recovered/Resolved]
  - Intentional product misuse [Recovered/Resolved]
  - Vomiting [Recovered/Resolved]
  - Chills [Recovered/Resolved]
  - Malaise [Recovered/Resolved]
  - Confusional state [Recovered/Resolved]
  - Azotaemia [Recovered/Resolved]

NARRATIVE: CASE EVENT DATE: 1973
